FAERS Safety Report 18515506 (Version 1)
Quarter: 2020Q4

REPORT INFORMATION
  Report Type: Spontaneous
  Country: US (occurrence: US)
  Receive Date: 20201118
  Receipt Date: 20201118
  Transmission Date: 20210114
  Serious: Yes (Hospitalization, Other)
  Sender: FDA-Public Use
  Company Number: US-HIKMA PHARMACEUTICALS USA INC.-US-H14001-20-52614

PATIENT
  Age: 70 Year
  Sex: Female

DRUGS (10)
  1. CHLORDIAZEPOXIDE. [Suspect]
     Active Substance: CHLORDIAZEPOXIDE
     Indication: AGITATION
     Route: 041
  2. DEXMEDETOMIDINE. [Concomitant]
     Active Substance: DEXMEDETOMIDINE
     Indication: AGITATION
     Route: 041
  3. HYDROMORPHONE [Suspect]
     Active Substance: HYDROMORPHONE
     Indication: AGITATION
     Route: 041
  4. MIDAZOLAM. [Suspect]
     Active Substance: MIDAZOLAM
     Indication: AGITATION
     Route: 041
  5. AMOXICILLIN, CLAVULANIC ACID [Concomitant]
     Active Substance: AMOXICILLIN\CLAVULANIC ACID
     Indication: PRODUCT USED FOR UNKNOWN INDICATION
     Route: 065
  6. QUETIAPINE. [Concomitant]
     Active Substance: QUETIAPINE
     Indication: AGITATION
     Route: 065
  7. KETAMINE [Concomitant]
     Active Substance: KETAMINE
     Indication: AGITATION
     Route: 041
  8. MELATONIN [Concomitant]
     Active Substance: MELATONIN
     Indication: AGITATION
     Dosage: NIGHTLY
     Route: 065
  9. PROPOFOL. [Suspect]
     Active Substance: PROPOFOL
     Indication: AGITATION
     Route: 041
  10. OXYCODONE [Suspect]
     Active Substance: OXYCODONE
     Indication: AGITATION
     Route: 041

REACTIONS (1)
  - Delirium [Recovered/Resolved]
